FAERS Safety Report 5812985-7 (Version None)
Quarter: 2008Q3

REPORT INFORMATION
  Report Type: 
  Country: None (occurrence: None)
  Receive Date: 20080717
  Receipt Date: 20070918
  Transmission Date: 20090109
  Serious: No
  Sender: FDA-Public Use
  Company Number: A0682307A

PATIENT
  Age: 20 Year
  Sex: Male

DRUGS (1)
  1. NICORETTE [Suspect]
     Indication: DRUG USE FOR UNKNOWN INDICATION
     Dates: start: 20070915

REACTIONS (7)
  - CHEST PAIN [None]
  - ERUCTATION [None]
  - FEAR [None]
  - HICCUPS [None]
  - MUSCULOSKELETAL CHEST PAIN [None]
  - NAUSEA [None]
  - RESPIRATORY TRACT CONGESTION [None]
